FAERS Safety Report 18567925 (Version 8)
Quarter: 2021Q3

REPORT INFORMATION
  Report Type: Spontaneous
  Country: FR (occurrence: FR)
  Receive Date: 20201202
  Receipt Date: 20210804
  Transmission Date: 20211014
  Serious: Yes (Other)
  Sender: FDA-Public Use
  Company Number: FR-AUROBINDO-AUR-APL-2020-047894

PATIENT
  Age: 28 Year
  Sex: Female

DRUGS (15)
  1. TERCIAN [Suspect]
     Active Substance: CYAMEMAZINE
     Indication: SCHIZOPHRENIA
     Dosage: 50 MILLIGRAM, DAILY
     Route: 048
     Dates: start: 2018
  2. LEXOMIL [Suspect]
     Active Substance: BROMAZEPAM
     Indication: HALLUCINATION
     Dosage: HALF TABLET
  3. PAROXETINE ARROW 20 MG FILM?COATED TABLETS [Suspect]
     Active Substance: PAROXETINE
     Indication: PRODUCT USED FOR UNKNOWN INDICATION
     Dosage: 20 MILLIGRAM, DAILY
     Route: 048
     Dates: start: 2018
  4. PAROXETINE ARROW 20 MG FILM?COATED TABLETS [Suspect]
     Active Substance: PAROXETINE
     Dosage: 10 MILLIGRAM, DAILY (DOSE REDUCED)
     Route: 048
     Dates: start: 20200907
  5. EPITOMAX [Suspect]
     Active Substance: TOPIRAMATE
     Indication: EPILEPSY
     Dosage: 200 MILLIGRAM, ONCE A DAY IN THE MORNING
  6. EVEROLIMUS. [Suspect]
     Active Substance: EVEROLIMUS
     Indication: ANGIOMYOLIPOMA
     Dosage: 10 MILLIGRAM, DAILY
     Route: 048
     Dates: start: 2018
  7. TERCIAN [Suspect]
     Active Substance: CYAMEMAZINE
     Dosage: 25 MILLIGRAM, DAILY
     Route: 048
     Dates: start: 202009
  8. VOTUBIA [Suspect]
     Active Substance: EVEROLIMUS
     Indication: PRODUCT USED FOR UNKNOWN INDICATION
     Dosage: UNK
     Route: 065
  9. EVEROLIMUS. [Suspect]
     Active Substance: EVEROLIMUS
     Indication: TUBEROUS SCLEROSIS COMPLEX
  10. EPITOMAX [Suspect]
     Active Substance: TOPIRAMATE
     Indication: EPILEPSY
     Dosage: 100 MILLIGRAM, ONCE A DAY IN THE MORNING
     Route: 048
     Dates: start: 2018
  11. LEPTICUR [Suspect]
     Active Substance: TROPATEPINE HYDROCHLORIDE
     Indication: PRODUCT USED FOR UNKNOWN INDICATION
     Dosage: 10 MILLIGRAM, DAILY
     Route: 048
     Dates: start: 2018
  12. PAROXETINE ARROW 20 MG FILM?COATED TABLETS [Suspect]
     Active Substance: PAROXETINE
     Dosage: 5 MILLIGRAM, DAILY
     Route: 048
     Dates: end: 202009
  13. EPITOMAX [Suspect]
     Active Substance: TOPIRAMATE
     Dosage: 200 MILLIGRAM, ONCE A DAY IN THE MORNING
  14. ZEBINIX [Suspect]
     Active Substance: ESLICARBAZEPINE ACETATE
     Indication: EPILEPSY
     Dosage: UNK
     Route: 048
     Dates: start: 2018
  15. HALDOL [Suspect]
     Active Substance: HALOPERIDOL
     Indication: SCHIZOPHRENIA
     Dosage: 5 MILLIGRAM, 3 TIMES A DAY
     Route: 048
     Dates: start: 2018, end: 20210121

REACTIONS (4)
  - Hyperprolactinaemia [Not Recovered/Not Resolved]
  - Amenorrhoea [Recovering/Resolving]
  - Galactorrhoea [Recovering/Resolving]
  - Intentional product use issue [Unknown]

NARRATIVE: CASE EVENT DATE: 202009
